FAERS Safety Report 12386014 (Version 1)
Quarter: 2016Q2

REPORT INFORMATION
  Report Type: Spontaneous
  Country: US (occurrence: US)
  Receive Date: 20160519
  Receipt Date: 20160519
  Transmission Date: 20160815
  Serious: No
  Sender: FDA-Public Use
  Company Number: US-ENDO PHARMACEUTICALS INC.-2016-001829

PATIENT
  Sex: Female
  Weight: 46.76 kg

DRUGS (10)
  1. LORAZEPAM TABLETS [Suspect]
     Active Substance: LORAZEPAM
     Route: 048
     Dates: end: 201602
  2. CYMBALTA [Concomitant]
     Active Substance: DULOXETINE HYDROCHLORIDE
     Indication: PRODUCT USED FOR UNKNOWN INDICATION
  3. CLONAZEPAM 0.5MG [Concomitant]
     Active Substance: CLONAZEPAM
     Indication: SLEEP DISORDER
  4. LORAZEPAM TABLETS [Suspect]
     Active Substance: LORAZEPAM
     Indication: POST-TRAUMATIC STRESS DISORDER
     Route: 048
  5. BUSPAR [Suspect]
     Active Substance: BUSPIRONE HYDROCHLORIDE
     Indication: DEPRESSION
     Route: 065
  6. VENTOLIN [Concomitant]
     Active Substance: ALBUTEROL SULFATE
     Indication: CHRONIC OBSTRUCTIVE PULMONARY DISEASE
  7. SYMBICORT [Concomitant]
     Active Substance: BUDESONIDE\FORMOTEROL FUMARATE DIHYDRATE
     Indication: CHRONIC OBSTRUCTIVE PULMONARY DISEASE
  8. LORAZEPAM TABLETS [Suspect]
     Active Substance: LORAZEPAM
     Indication: ANXIETY
     Route: 048
  9. LORAZEPAM TABLETS [Suspect]
     Active Substance: LORAZEPAM
     Route: 048
  10. LORAZEPAM TABLETS [Suspect]
     Active Substance: LORAZEPAM
     Route: 048

REACTIONS (2)
  - Agitation [Unknown]
  - Tremor [Unknown]
